FAERS Safety Report 11777199 (Version 3)
Quarter: 2016Q1

REPORT INFORMATION
  Report Type: Spontaneous
  Country: US (occurrence: US)
  Receive Date: 20151125
  Receipt Date: 20160217
  Transmission Date: 20160525
  Serious: No
  Sender: FDA-Public Use
  Company Number: US-PFIZER INC-2015390326

PATIENT
  Age: 54 Year
  Sex: Male

DRUGS (2)
  1. SUTENT [Suspect]
     Active Substance: SUNITINIB MALATE
     Indication: RENAL CANCER
     Dosage: 50 MG, CYCLIC (1 CAPSULE ONCE DAILY AT BED TIME EVERY NIGHT FOR 28 DAYS ON/14 DAYS OFF)
     Dates: start: 20070628
  2. SUTENT [Suspect]
     Active Substance: SUNITINIB MALATE
     Dosage: 25 MG, CYCLIC (1 CAPSULE ONCE DAILY FOR 28 DAYS ON/14 DAYS OFF)
     Dates: start: 20140114, end: 201403

REACTIONS (3)
  - Renal cancer [Not Recovered/Not Resolved]
  - Blister [Unknown]
  - Disease recurrence [Not Recovered/Not Resolved]

NARRATIVE: CASE EVENT DATE: 201404
